FAERS Safety Report 4587249-2 (Version None)
Quarter: 2005Q1

REPORT INFORMATION
  Report Type: 
  Country: None (occurrence: None)
  Receive Date: 20050218
  Receipt Date: 20050210
  Transmission Date: 20050727
  Serious: Yes (Life-Threatening, Hospitalization)
  Sender: FDA-Public Use
  Company Number: GB-GLAXOSMITHKLINE-B0371033A

PATIENT
  Age: 10 Year
  Sex: Female
  Weight: 34.8 kg

DRUGS (10)
  1. SERETIDE [Suspect]
     Indication: CYSTIC FIBROSIS
     Dates: start: 20041208, end: 20050112
  2. FLUTICASONE PROPIONATE [Suspect]
     Route: 055
     Dates: start: 20040310, end: 20041208
  3. ITRACONAZOLE [Suspect]
     Dosage: 150MG TWICE PER DAY
     Route: 048
     Dates: start: 20040714, end: 20050120
  4. VITAMIN E ACETATE [Concomitant]
     Indication: CYSTIC FIBROSIS
     Dosage: 100MG PER DAY
     Route: 048
  5. URSODEOXYCHOLIC ACID [Concomitant]
     Indication: CYSTIC FIBROSIS
     Dosage: 375MG TWICE PER DAY
     Route: 048
  6. CEFACLOR [Concomitant]
     Indication: CYSTIC FIBROSIS
     Dosage: 750MG TWICE PER DAY
     Route: 048
  7. PREDNISOLONE [Concomitant]
     Indication: CYSTIC FIBROSIS
     Route: 065
     Dates: start: 20030101
  8. CREON [Concomitant]
     Indication: CYSTIC FIBROSIS
     Route: 048
  9. ABDEC [Concomitant]
     Indication: CYSTIC FIBROSIS
     Dosage: 1ML PER DAY
     Route: 048
  10. TOBI [Concomitant]
     Indication: CYSTIC FIBROSIS
     Dosage: 300MG TWICE PER DAY

REACTIONS (4)
  - BLOOD CORTISOL DECREASED [None]
  - DRUG INTERACTION [None]
  - GROWTH RETARDATION [None]
  - PITUITARY-DEPENDENT CUSHING'S SYNDROME [None]
